FAERS Safety Report 18578552 (Version 2)
Quarter: 2020Q4

REPORT INFORMATION
  Report Type: Spontaneous
  Country: PL (occurrence: PL)
  Receive Date: 20201204
  Receipt Date: 20201221
  Transmission Date: 20210114
  Serious: No
  Sender: FDA-Public Use
  Company Number: PL-PFIZER INC-2020472314

PATIENT
  Age: 43 Year
  Sex: Male

DRUGS (2)
  1. CYTARABINE. [Suspect]
     Active Substance: CYTARABINE
     Dosage: UNK
     Route: 058
  2. HYDROXYUREA. [Suspect]
     Active Substance: HYDROXYUREA
     Dosage: UNK

REACTIONS (1)
  - No adverse event [Unknown]
